FAERS Safety Report 11109551 (Version 1)
Quarter: 2015Q2

REPORT INFORMATION
  Report Type: Spontaneous
  Country: US (occurrence: US)
  Receive Date: 20150513
  Receipt Date: 20150513
  Transmission Date: 20150821
  Serious: No
  Sender: FDA-Public Use
  Company Number: US-MYLANLABS-2015M1012388

PATIENT
  Age: 19 Year
  Sex: Female
  Weight: 63.49 kg

DRUGS (1)
  1. XULANE [Suspect]
     Active Substance: ETHINYL ESTRADIOL\NORELGESTROMIN
     Indication: CONTRACEPTION
     Dosage: 150/35 ?G, QD, CHANGED QW X 3, OFF 1W
     Route: 062
     Dates: start: 201501, end: 201503

REACTIONS (6)
  - Application site acne [Recovered/Resolved]
  - Application site pruritus [Recovered/Resolved]
  - Application site irritation [Not Recovered/Not Resolved]
  - Application site discolouration [Not Recovered/Not Resolved]
  - Application site burn [Recovered/Resolved]
  - Application site rash [Recovered/Resolved]

NARRATIVE: CASE EVENT DATE: 201502
